FAERS Safety Report 7476475-0 (Version None)
Quarter: 2011Q2

REPORT INFORMATION
  Report Type: 
  Country: None (occurrence: None)
  Receive Date: 20110512
  Receipt Date: 20110504
  Transmission Date: 20111010
  Serious: Yes (Hospitalization, Other)
  Sender: FDA-Public Use
  Company Number: US-JNJFOC-20100106067

PATIENT
  Age: 62 Year
  Sex: Female

DRUGS (4)
  1. EXTRA STRENGTH TYLENOL [Suspect]
     Route: 048
  2. ROLAIDS [Suspect]
     Indication: DYSPEPSIA
  3. EXTRA STRENGTH TYLENOL [Suspect]
     Indication: ILL-DEFINED DISORDER
     Route: 048
  4. ROLAIDS TAB [Suspect]
     Indication: DYSPEPSIA
     Route: 048

REACTIONS (4)
  - MALAISE [None]
  - PRODUCT QUALITY ISSUE [None]
  - CHOLECYSTITIS [None]
  - INCORRECT DRUG ADMINISTRATION DURATION [None]
